FAERS Safety Report 7783170-7 (Version None)
Quarter: 2011Q3

REPORT INFORMATION
  Report Type: 
  Country: None (occurrence: None)
  Receive Date: 20110928
  Receipt Date: 20110919
  Transmission Date: 20111222
  Serious: Yes (Other)
  Sender: FDA-Public Use
  Company Number: TR-BRISTOL-MYERS SQUIBB COMPANY-16097941

PATIENT

DRUGS (1)
  1. MITOMYCIN [Suspect]
     Dosage: EYE DROPS
     Route: 061

REACTIONS (1)
  - DERMATITIS CONTACT [None]
